FAERS Safety Report 15290586 (Version 1)
Quarter: 2018Q3

REPORT INFORMATION
  Report Type: Spontaneous
  Country: US (occurrence: US)
  Receive Date: 20180805
  Receipt Date: 20180805
  Transmission Date: 20181010
  Serious: Yes (Hospitalization)
  Sender: FDA-Public Use
  Company Number: None

PATIENT
  Age: 55 Year
  Sex: Male
  Weight: 65.86 kg

DRUGS (1)
  1. LAMOTRIGINE. [Suspect]
     Active Substance: LAMOTRIGINE
     Indication: AFFECTIVE DISORDER
     Route: 048
     Dates: start: 20180620, end: 20180726

REACTIONS (5)
  - Rash [None]
  - Pyrexia [None]
  - Swelling face [None]
  - Therapy change [None]
  - Papule [None]

NARRATIVE: CASE EVENT DATE: 20180718
